FAERS Safety Report 4796401-2 (Version None)
Quarter: 2005Q4

REPORT INFORMATION
  Report Type: 
  Country: None (occurrence: None)
  Receive Date: 20051006
  Receipt Date: 20051006
  Transmission Date: 20060501
  Serious: Yes (Hospitalization, Other)
  Sender: FDA-Public Use
  Company Number: None

PATIENT
  Sex: Female
  Weight: 71 kg

DRUGS (4)
  1. CISPLATIN [Suspect]
     Indication: ANAL CANCER
     Dosage: SEE IMAGE
     Route: 042
     Dates: start: 20050606, end: 20050829
  2. CISPLATIN [Suspect]
     Indication: ANAL CANCER
     Dosage: SEE IMAGE
     Route: 042
     Dates: start: 20050829
  3. FLUOROURACIL [Suspect]
     Dosage: SEE IMAGE
     Route: 042
     Dates: start: 20050829
  4. RADIOTHERAPY [Suspect]
     Dosage: SEE IMAGE
     Dates: start: 20050829

REACTIONS (5)
  - BLOOD MAGNESIUM DECREASED [None]
  - BLOOD POTASSIUM DECREASED [None]
  - DRUG EFFECT DECREASED [None]
  - FEELING ABNORMAL [None]
  - TEARFULNESS [None]
